FAERS Safety Report 8702329 (Version 2)
Quarter: 2013Q4

REPORT INFORMATION
  Report Type: Spontaneous
  Country: US (occurrence: US)
  Receive Date: 20120803
  Receipt Date: 20131105
  Transmission Date: 20140711
  Serious: Yes (Other)
  Sender: FDA-Public Use
  Company Number: US-009507513-1207USA010956

PATIENT
  Age: 52 Year
  Sex: Male

DRUGS (13)
  1. ZOCOR [Suspect]
     Route: 048
  2. ALLOPURINOL [Suspect]
  3. DARBEPOETIN ALFA [Concomitant]
  4. ENOXAPARIN SODIUM [Concomitant]
  5. PREDNISONE [Concomitant]
  6. LABETALOL HYDROCHLORIDE [Concomitant]
  7. METOLAZONE [Concomitant]
  8. ONDANSETRON [Concomitant]
  9. PANTOPRAZOLE [Concomitant]
  10. POTASSIUM CHLORIDE [Concomitant]
  11. CLONIDINE [Concomitant]
  12. ERGOCALCIFEROL [Concomitant]
  13. INSULIN [Concomitant]

REACTIONS (8)
  - Cardiac arrest [Unknown]
  - Focal segmental glomerulosclerosis [Unknown]
  - Gastrointestinal haemorrhage [Unknown]
  - Decreased appetite [Unknown]
  - Cholestasis [Unknown]
  - Drug-induced liver injury [Unknown]
  - Nausea [Unknown]
  - Jaundice [Unknown]
